FAERS Safety Report 6558269-3 (Version None)
Quarter: 2010Q1

REPORT INFORMATION
  Report Type: 
  Country: None (occurrence: None)
  Receive Date: 20100128
  Receipt Date: 20100128
  Transmission Date: 20100710
  Serious: Yes (Disabling)
  Sender: FDA-Public Use
  Company Number: None

PATIENT
  Sex: Female
  Weight: 63.5036 kg

DRUGS (1)
  1. RISPERDAL [Suspect]
     Indication: PARKINSON'S DISEASE
     Dosage: 1 MG. 4 YRS.
     Dates: start: 20060301, end: 20091201

REACTIONS (2)
  - ABASIA [None]
  - PARKINSON'S DISEASE [None]
